FAERS Safety Report 5047852-2 (Version None)
Quarter: 2006Q3

REPORT INFORMATION
  Report Type: 
  Country: None (occurrence: None)
  Receive Date: 20060703
  Receipt Date: 20060627
  Transmission Date: 20061208
  Serious: Yes (Other)
  Sender: FDA-Public Use
  Company Number: 007869

PATIENT
  Sex: Female

DRUGS (3)
  1. MEDROXYPROGESTERONE [Suspect]
     Dosage: ORAL
     Route: 048
     Dates: start: 19980101, end: 20000901
  2. PREMPHASE (PREMARIN;CYCRIN 14/14) [Suspect]
     Dosage: ORAL
     Route: 048
     Dates: start: 19980101, end: 20000901
  3. PREMPRO [Suspect]
     Dosage: ORAL
     Route: 048
     Dates: start: 19980101, end: 20000901

REACTIONS (1)
  - BREAST CANCER FEMALE [None]
